FAERS Safety Report 9298857 (Version 4)
Quarter: 2013Q4

REPORT INFORMATION
  Report Type: Spontaneous
  Country: US (occurrence: US)
  Receive Date: 20130520
  Receipt Date: 20131111
  Transmission Date: 20140711
  Serious: No
  Sender: FDA-Public Use
  Company Number: US-PFIZER INC-2013153092

PATIENT
  Sex: Female

DRUGS (12)
  1. CELEBREX [Suspect]
     Indication: PAIN
     Dosage: UNK
     Route: 048
  2. TRETINOIN [Concomitant]
     Dosage: 0.025 %, UNK
  3. KETOCONAZOLE [Concomitant]
     Dosage: 2 %, UNK
  4. RESTASIS [Concomitant]
     Dosage: 1 GTT, UNK
  5. REFRESH [Concomitant]
     Dosage: UNK, HS
     Route: 047
  6. VALTREX [Concomitant]
     Dosage: 1 G, UNK
  7. ORACEA [Concomitant]
     Dosage: 100 MG, UNK
  8. VITAMIN D [Concomitant]
     Dosage: 2000 IU, UNK
  9. IMITREX [Concomitant]
     Dosage: UNK
  10. CLEOCIN [Concomitant]
     Dosage: UNK
  11. PENLAC [Concomitant]
     Dosage: UNK
  12. VALIUM [Concomitant]
     Dosage: UNK

REACTIONS (2)
  - Confusional state [Unknown]
  - Feeling abnormal [Unknown]
